FAERS Safety Report 25618213 (Version 2)
Quarter: 2025Q3

REPORT INFORMATION
  Report Type: Spontaneous
  Country: US (occurrence: US)
  Receive Date: 20250729
  Receipt Date: 20250804
  Transmission Date: 20251020
  Serious: No
  Sender: SANOFI AVENTIS
  Company Number: US-SANOFI-02603145

PATIENT
  Age: 73 Year
  Sex: Female

DRUGS (22)
  1. DUPIXENT [Suspect]
     Active Substance: DUPILUMAB
     Indication: Dermatitis atopic
     Route: 058
     Dates: start: 20250324
  2. VITAMIN D [Concomitant]
     Active Substance: VITAMIN D NOS
  3. VALACYCLOVIR [Concomitant]
     Active Substance: VALACYCLOVIR HYDROCHLORIDE
  4. HYDROXYZINE [Concomitant]
     Active Substance: HYDROXYZINE HYDROCHLORIDE
  5. Beet root [Concomitant]
  6. FLUOCINONIDE [Concomitant]
     Active Substance: FLUOCINONIDE
  7. TESTOSTERONE [Concomitant]
     Active Substance: TESTOSTERONE
  8. Daragen [Concomitant]
  9. TACROLIMUS [Concomitant]
     Active Substance: TACROLIMUS
  10. VITAMIN E [Concomitant]
     Active Substance: .ALPHA.-TOCOPHEROL
  11. METAMUCIL [Concomitant]
     Active Substance: PLANTAGO SEED
  12. ZINC [Concomitant]
     Active Substance: ZINC
  13. COENZYME Q10 [Concomitant]
     Active Substance: DIETARY SUPPLEMENT\UBIDECARENONE
  14. MAGNESIUM [Concomitant]
     Active Substance: MAGNESIUM
  15. HERBALS\TURMERIC [Concomitant]
     Active Substance: HERBALS\TURMERIC
  16. OMEGA 3 [Concomitant]
     Active Substance: CAPSAICIN
  17. TYLENOL [Concomitant]
     Active Substance: ACETAMINOPHEN
  18. PROBIOTICS NOS [Concomitant]
     Active Substance: PROBIOTICS NOS
  19. VITAMINS [Concomitant]
     Active Substance: VITAMINS
  20. ASTAXANTHIN [Concomitant]
     Active Substance: ASTAXANTHIN
  21. BIOTIN [Concomitant]
     Active Substance: BIOTIN
  22. FLUOROURACIL [Concomitant]
     Active Substance: FLUOROURACIL

REACTIONS (3)
  - Injection site pain [Unknown]
  - Inappropriate schedule of product administration [Unknown]
  - Incorrect dose administered [Unknown]

NARRATIVE: CASE EVENT DATE: 20250101
